FAERS Safety Report 4650540-5 (Version None)
Quarter: 2005Q2

REPORT INFORMATION
  Report Type: 
  Country: None (occurrence: None)
  Receive Date: 20050429
  Receipt Date: 20050415
  Transmission Date: 20051028
  Serious: Yes (Hospitalization)
  Sender: FDA-Public Use
  Company Number: DSA_26195_2005

PATIENT
  Age: 62 Year
  Sex: Male

DRUGS (6)
  1. MONO-TILDIEM - SLOW RELEASE [Suspect]
     Dosage: 1 CAP Q DAY PO
     Route: 048
     Dates: start: 20050202, end: 20050221
  2. EQUANIL [Concomitant]
  3. TERCIAN [Concomitant]
  4. ATHYMIL [Concomitant]
  5. DIAMICRON [Concomitant]
  6. OMEPRAZOLE [Concomitant]

REACTIONS (5)
  - LEUKOCYTOSIS [None]
  - PRURITUS [None]
  - PYREXIA [None]
  - RASH SCARLATINIFORM [None]
  - SKIN EXFOLIATION [None]
